FAERS Safety Report 15168612 (Version 3)
Quarter: 2018Q3

REPORT INFORMATION
  Report Type: Spontaneous
  Country: US (occurrence: US)
  Receive Date: 20180719
  Receipt Date: 20180928
  Transmission Date: 20181010
  Serious: No
  Sender: FDA-Public Use
  Company Number: US-ASTRAZENECA-2018SE82621

PATIENT
  Sex: Male
  Weight: 86.6 kg

DRUGS (1)
  1. SYMBICORT [Suspect]
     Active Substance: BUDESONIDE\FORMOTEROL FUMARATE DIHYDRATE
     Indication: ASTHMA
     Dosage: 160?4.5 MCG, TWO INHALATIONS TWICE A DAY
     Route: 055
     Dates: start: 20171031

REACTIONS (3)
  - Cough [Unknown]
  - Drug dose omission [Unknown]
  - Device issue [Unknown]
